FAERS Safety Report 17008660 (Version 2)
Quarter: 2019Q4

REPORT INFORMATION
  Report Type: Spontaneous
  Country: DE (occurrence: DE)
  Receive Date: 20191108
  Receipt Date: 20191114
  Transmission Date: 20200122
  Serious: Yes (Other)
  Sender: FDA-Public Use
  Company Number: DE-ACCORD-160477

PATIENT
  Age: 40 Year
  Sex: Male

DRUGS (2)
  1. MEMANTINE/MEMANTINE HYDROCHLORIDE [Concomitant]
     Indication: DEMENTIA ALZHEIMER^S TYPE
  2. DONEPEZIL/DONEPEZIL HYDROCHLORIDE [Suspect]
     Active Substance: DONEPEZIL HYDROCHLORIDE
     Indication: DEMENTIA ALZHEIMER^S TYPE

REACTIONS (4)
  - Pleurothotonus [Recovered/Resolved]
  - Seizure [Unknown]
  - Myoclonus [Unknown]
  - Dementia [Unknown]
